APPROVED DRUG PRODUCT: VYVANSE
Active Ingredient: LISDEXAMFETAMINE DIMESYLATE
Strength: 30MG
Dosage Form/Route: CAPSULE;ORAL
Application: N021977 | Product #001 | TE Code: AB
Applicant: TAKEDA PHARMACEUTICALS USA INC
Approved: Feb 23, 2007 | RLD: Yes | RS: No | Type: RX